FAERS Safety Report 5377838-X (Version None)
Quarter: 2007Q3

REPORT INFORMATION
  Report Type: 
  Country: None (occurrence: None)
  Receive Date: 20070703
  Receipt Date: 20070625
  Transmission Date: 20080115
  Serious: Yes (Other)
  Sender: FDA-Public Use
  Company Number: ES-PFIZER INC-2007053206

PATIENT
  Age: 40 Year
  Sex: Female

DRUGS (1)
  1. SALAZOPYRINA [Suspect]
     Indication: INFLAMMATORY BOWEL DISEASE
     Route: 048
     Dates: start: 20060101, end: 20070101

REACTIONS (1)
  - DRUG ERUPTION [None]
